FAERS Safety Report 5812290-9 (Version None)
Quarter: 2008Q3

REPORT INFORMATION
  Report Type: 
  Country: None (occurrence: None)
  Receive Date: 20080716
  Receipt Date: 20080704
  Transmission Date: 20090109
  Serious: Yes (Other)
  Sender: FDA-Public Use
  Company Number: US-PFIZER INC-2008056427

PATIENT
  Sex: Female
  Weight: 70.3 kg

DRUGS (8)
  1. CHANTIX [Suspect]
     Indication: SMOKING CESSATION THERAPY
  2. AMBIEN [Concomitant]
  3. XANAX [Concomitant]
  4. NEURONTIN [Concomitant]
  5. ZETIA [Concomitant]
  6. NIACIN [Concomitant]
  7. ACETYLSALICYLIC ACID SRT [Concomitant]
  8. VICODIN [Concomitant]

REACTIONS (1)
  - VISION BLURRED [None]
